FAERS Safety Report 23014907 (Version 1)
Quarter: 2023Q4

REPORT INFORMATION
  Report Type: Other
  Country: None (occurrence: US)
  Receive Date: 20231002
  Receipt Date: 20231002
  Transmission Date: 20240110
  Serious: Yes (Hospitalization, Other)
  Sender: FDA-Public Use
  Company Number: US-Marksans Pharma Limited-2146545

PATIENT
  Age: 23 Year
  Sex: Female

DRUGS (2)
  1. ACETAMINOPHEN [Suspect]
     Active Substance: ACETAMINOPHEN
     Indication: Product used for unknown indication
     Route: 065
  2. SALICYLATE [Suspect]
     Active Substance: SALICYLIC ACID
     Route: 065

REACTIONS (3)
  - Exposure during pregnancy [Unknown]
  - Acute fatty liver of pregnancy [Recovered/Resolved]
  - Caesarean section [Unknown]
